FAERS Safety Report 8549742-7 (Version None)
Quarter: 2012Q3

REPORT INFORMATION
  Report Type: 
  Country: None (occurrence: None)
  Receive Date: 20120730
  Receipt Date: 20120723
  Transmission Date: 20120928
  Serious: Yes (Other)
  Sender: FDA-Public Use
  Company Number: DE-US-EMD SERONO, INC.-7149659

PATIENT
  Sex: Female
  Weight: 68 kg

DRUGS (1)
  1. REBIF [Suspect]
     Indication: MULTIPLE SCLEROSIS
     Route: 058

REACTIONS (5)
  - VISUAL ACUITY REDUCED [None]
  - THIRST DECREASED [None]
  - DECREASED APPETITE [None]
  - ABDOMINAL PAIN [None]
  - CIRCULATORY COLLAPSE [None]
